FAERS Safety Report 12678772 (Version 2)
Quarter: 2016Q3

REPORT INFORMATION
  Report Type: Report from Study
  Country: DE (occurrence: DE)
  Receive Date: 20160824
  Receipt Date: 20160928
  Transmission Date: 20161109
  Serious: Yes (Hospitalization)
  Sender: FDA-Public Use
  Company Number: DE-AMGEN-DEUCT2016105219

PATIENT
  Age: 48 Year
  Sex: Female
  Weight: 67 kg

DRUGS (24)
  1. SANDOCAL D [Concomitant]
     Dosage: 500/440, MG/IU
     Route: 048
     Dates: start: 20120522
  2. ZOLPIDEM [Concomitant]
     Active Substance: ZOLPIDEM\ZOLPIDEM TARTRATE
     Dosage: 10 MG, 1 UNK, UNK
     Route: 048
     Dates: start: 20120801, end: 20121012
  3. PEGFILGRASTIM [Concomitant]
     Active Substance: PEGFILGRASTIM
     Dosage: 6 MG, UNK
     Route: 058
     Dates: start: 20120725, end: 20120725
  4. PERFALGAN [Concomitant]
     Active Substance: ACETAMINOPHEN
     Dosage: 1 G, UNK
     Route: 042
     Dates: start: 20120731, end: 20120731
  5. FLUOMYCIN [Concomitant]
     Dosage: 1 UNK, UNK
     Route: 050
     Dates: start: 20120724, end: 20120807
  6. SALVIATHYMOL [Concomitant]
     Dosage: 20 GTT, UNK
     Route: 050
     Dates: start: 20120804, end: 20120804
  7. APREPITANT. [Concomitant]
     Active Substance: APREPITANT
     Dosage: 80-125 MG, UNK
     Route: 048
     Dates: start: 20120522, end: 20120705
  8. VOLTAREN [Concomitant]
     Active Substance: DICLOFENAC SODIUM
     Dosage: 2 UNK, UNK
     Route: 048
     Dates: start: 20121010, end: 20121010
  9. DEXAPANTHENOL [Concomitant]
     Dosage: 5 ML, UNK
     Route: 050
     Dates: start: 20120731, end: 20120805
  10. AKNEMYCIN [Concomitant]
     Dosage: 1 UNK, UNK
     Route: 061
     Dates: start: 20120529, end: 20120602
  11. DENOSUMAB [Suspect]
     Active Substance: DENOSUMAB
     Indication: BREAST CANCER
     Dosage: 120 MG, UNK
     Route: 058
     Dates: start: 20120522
  12. IBUPROFEN. [Concomitant]
     Active Substance: IBUPROFEN
     Dosage: 400 TO 600 MG, UNK
     Route: 048
     Dates: start: 2007
  13. LAXOBERAL [Concomitant]
     Active Substance: SODIUM PICOSULFATE
     Dosage: 8 GTT, UNK
     Route: 048
     Dates: start: 20120804, end: 20120804
  14. DERMATOP [Concomitant]
     Active Substance: PREDNICARBATE
     Dosage: 1 UNK, UNK
     Route: 061
     Dates: start: 20120529, end: 20120602
  15. CEFUROXIM [Concomitant]
     Active Substance: CEFUROXIME
     Dosage: 1.5 G, UNK
     Route: 042
     Dates: start: 20121009, end: 20121009
  16. CLEXANE [Concomitant]
     Active Substance: ENOXAPARIN SODIUM
     Dosage: 20 TO 40 MG, UNK
     Route: 058
     Dates: start: 20120731
  17. LIDOCAIN [Concomitant]
     Active Substance: LIDOCAINE
     Dosage: 1 UNK, UNK
     Route: 048
     Dates: start: 20120802, end: 20120805
  18. PIPERACILLIN AND TAZOBACTAM [Concomitant]
     Active Substance: PIPERACILLIN SODIUM\TAZOBACTAM SODIUM
     Dosage: 4.5 G, UNK
     Route: 042
     Dates: start: 20120731, end: 20120819
  19. AMPHO MORONAL [Concomitant]
     Active Substance: AMPHOTERICIN B
     Dosage: 1 UNK, UNK
     Route: 050
     Dates: start: 20120713, end: 20120805
  20. SELEN [Concomitant]
     Active Substance: SELENIUM
     Dosage: 1 UNK, UNK
     Route: 048
     Dates: start: 201210
  21. LACHESIS COMPLEXE N 122 [Concomitant]
     Dosage: 1 UNK, UNK
     Route: 048
     Dates: start: 20120628
  22. DULCOLAX NOS [Concomitant]
     Active Substance: BISACODYL OR DOCUSATE SODIUM
     Dosage: 1 UNK, UNK
     Route: 048
     Dates: start: 20120802, end: 20120803
  23. DEXAMETHASON [Concomitant]
     Active Substance: DEXAMETHASONE
     Dosage: 8 MG, UNK
     Dates: start: 20120522, end: 20120912
  24. LOPERAMID [Concomitant]
     Active Substance: LOPERAMIDE
     Dosage: 2 MG, UNK
     Route: 048
     Dates: start: 20160330, end: 20160406

REACTIONS (1)
  - Foot fracture [Not Recovered/Not Resolved]

NARRATIVE: CASE EVENT DATE: 20160706
